FAERS Safety Report 5954650-1 (Version None)
Quarter: 2008Q4

REPORT INFORMATION
  Report Type: 
  Country: None (occurrence: None)
  Receive Date: 20081113
  Receipt Date: 20081029
  Transmission Date: 20090506
  Serious: Yes (Death, Hospitalization)
  Sender: FDA-Public Use
  Company Number: 2008002800

PATIENT
  Age: 67 Year
  Sex: Male

DRUGS (4)
  1. ERLOTINIB (ERLOTINIB) (TABLET) (ERLOTINIB) [Suspect]
     Indication: NON-SMALL CELL LUNG CANCER
     Dosage: (150 MG), ORAL
     Route: 048
     Dates: start: 20080908, end: 20081017
  2. ASPIRIN [Concomitant]
  3. AMLODIPINE [Concomitant]
  4. LACTULOSE [Concomitant]

REACTIONS (6)
  - CARDIAC FAILURE [None]
  - CARDIAC FAILURE CONGESTIVE [None]
  - CARDIOMEGALY [None]
  - PNEUMONIA [None]
  - RASH [None]
  - STOMATITIS [None]
